FAERS Safety Report 24532069 (Version 2)
Quarter: 2025Q1

REPORT INFORMATION
  Report Type: Spontaneous
  Country: DE (occurrence: DE)
  Receive Date: 20241022
  Receipt Date: 20250111
  Transmission Date: 20250409
  Serious: Yes (Other)
  Sender: CELLTRION
  Company Number: DE-EMBRYOTOX-202308822

PATIENT

DRUGS (4)
  1. HUMIRA [Suspect]
     Active Substance: ADALIMUMAB
     Indication: Rheumatoid arthritis
     Dosage: 40 MG [1X/2WKS ]; GESTATION PERIOD AT TIME OF EXPOSURE: 1 {TRIMESTER}; ADDITIONAL INFORMATION ON DRU
     Route: 064
     Dates: start: 20230128, end: 20231110
  2. ADALIMUMAB [Suspect]
     Active Substance: ADALIMUMAB
     Indication: Rheumatoid arthritis
     Dosage: 40 MG [1X/2WKS] (0. - 40.6. GESTATIONAL WEEK)
     Route: 064
     Dates: start: 20230128, end: 20231110
  3. PREDNISOLONE [Suspect]
     Active Substance: PREDNISOLONE
     Indication: Rheumatoid arthritis
     Route: 064
     Dates: start: 20230914, end: 20231026
  4. FOLSAURE VITBALANS [Concomitant]
     Indication: Prophylaxis of neural tube defect
     Route: 064
     Dates: start: 20230128, end: 20231110

REACTIONS (2)
  - Small for dates baby [Recovering/Resolving]
  - Foetal exposure during pregnancy [Unknown]

NARRATIVE: CASE EVENT DATE: 20231101
